FAERS Safety Report 8262147-1 (Version None)
Quarter: 2012Q2

REPORT INFORMATION
  Report Type: 
  Country: None (occurrence: None)
  Receive Date: 20120405
  Receipt Date: 20120321
  Transmission Date: 20120825
  Serious: Yes (Hospitalization)
  Sender: FDA-Public Use
  Company Number: FR-ROCHE-1045608

PATIENT
  Sex: Female

DRUGS (6)
  1. CORDARONE [Concomitant]
     Dates: start: 20111101, end: 20111101
  2. EVEROLIMUS [Suspect]
     Indication: RENAL TRANSPLANT
     Route: 002
     Dates: start: 20111217, end: 20120207
  3. MYCOPHENOLATE MOFETIL (CELLCEPT) [Suspect]
     Indication: RENAL TRANSPLANT
     Route: 002
     Dates: start: 20111107
  4. CORDARONE [Concomitant]
     Dates: start: 20120111, end: 20120217
  5. PREDNISONE [Suspect]
     Indication: RENAL TRANSPLANT
     Route: 002
     Dates: start: 20111203, end: 20120211
  6. PREDNISOLONE SODIUM METASULFOBENZOATE [Suspect]
     Indication: RENAL TRANSPLANT
     Dates: start: 20120212

REACTIONS (3)
  - NEUTROPENIA [None]
  - HYPERGLYCAEMIA [None]
  - HYPERTHYROIDISM [None]
